FAERS Safety Report 15011399 (Version 4)
Quarter: 2018Q3

REPORT INFORMATION
  Report Type: Spontaneous
  Country: US (occurrence: US)
  Receive Date: 20180614
  Receipt Date: 20180928
  Transmission Date: 20181010
  Serious: Yes (Hospitalization, Other)
  Sender: FDA-Public Use
  Company Number: US-OTSUKA-2018_015334

PATIENT
  Sex: Female

DRUGS (7)
  1. QUINAPRIL. [Concomitant]
     Active Substance: QUINAPRIL
     Indication: PRODUCT USED FOR UNKNOWN INDICATION
     Dosage: 1 DF, QAM
     Route: 065
  2. METOPROLOL TARTRATE. [Concomitant]
     Active Substance: METOPROLOL TARTRATE
     Indication: PRODUCT USED FOR UNKNOWN INDICATION
     Dosage: 25 MG, UNK
     Route: 065
  3. HYDRALAZINE W/HYDROCHLOROTHIAZIDE/RESERPINE [Concomitant]
     Active Substance: HYDRALAZINE\HYDROCHLOROTHIAZIDE\RESERPINE
     Indication: PRODUCT USED FOR UNKNOWN INDICATION
     Dosage: 1 DF (25?0.1?15), QAM
     Route: 065
  4. BUDEPRION XL [Concomitant]
     Active Substance: BUPROPION HYDROCHLORIDE
     Indication: PRODUCT USED FOR UNKNOWN INDICATION
     Dosage: 300 MG, UNK
     Route: 065
  5. CYMBALTA [Concomitant]
     Active Substance: DULOXETINE HYDROCHLORIDE
     Indication: PRODUCT USED FOR UNKNOWN INDICATION
     Dosage: 1 DF, QD
     Route: 048
  6. ABILIFY [Suspect]
     Active Substance: ARIPIPRAZOLE
     Indication: MAJOR DEPRESSION
     Dosage: 2 MG, QD
     Route: 065
     Dates: start: 2008, end: 2010
  7. TRIAMTERENE W/HCTZ [Concomitant]
     Indication: PRODUCT USED FOR UNKNOWN INDICATION
     Dosage: 1 DF (37.5 ?25 MG), QAM
     Route: 048

REACTIONS (24)
  - Suicide attempt [Recovered/Resolved]
  - Suicidal ideation [Recovered/Resolved]
  - Ligament sprain [Unknown]
  - Back pain [Unknown]
  - Arthralgia [Unknown]
  - Anxiety [Unknown]
  - Gambling disorder [Recovered/Resolved]
  - Bankruptcy [Unknown]
  - Depression [Unknown]
  - Non-alcoholic fatty liver [Unknown]
  - Dyspnoea [Unknown]
  - Obesity [Recovering/Resolving]
  - Osteoarthritis [Unknown]
  - Eating disorder [Recovered/Resolved]
  - Hypersexuality [Recovered/Resolved]
  - Mental disorder [Unknown]
  - Hypercholesterolaemia [Unknown]
  - Loss of employment [Unknown]
  - Compulsive sexual behaviour [Recovered/Resolved]
  - Economic problem [Unknown]
  - Divorced [Unknown]
  - Sleep apnoea syndrome [Unknown]
  - Compulsive shopping [Recovered/Resolved]
  - Weight increased [Unknown]

NARRATIVE: CASE EVENT DATE: 2008
